FAERS Safety Report 13866170 (Version 2)
Quarter: 2018Q2

REPORT INFORMATION
  Report Type: Spontaneous
  Country: US (occurrence: US)
  Receive Date: 20170814
  Receipt Date: 20180608
  Transmission Date: 20180711
  Serious: No
  Sender: FDA-Public Use
  Company Number: US-ROCHE-1843081

PATIENT
  Sex: Female

DRUGS (2)
  1. ACTEMRA [Suspect]
     Active Substance: TOCILIZUMAB
     Indication: RHEUMATOID ARTHRITIS
     Route: 058
     Dates: start: 20160825
  2. ACTEMRA [Suspect]
     Active Substance: TOCILIZUMAB
     Route: 058
     Dates: start: 20160819

REACTIONS (6)
  - Pruritus [Unknown]
  - Paraesthesia [Unknown]
  - Oral pruritus [Unknown]
  - Malaise [Unknown]
  - Paraesthesia oral [Unknown]
  - Dermatitis contact [Unknown]
